FAERS Safety Report 9583803 (Version 1)
Quarter: 2013Q4

REPORT INFORMATION
  Report Type: Spontaneous
  Country: US (occurrence: US)
  Receive Date: 20131002
  Receipt Date: 20131002
  Transmission Date: 20140711
  Serious: No
  Sender: FDA-Public Use
  Company Number: US-AMGEN-USASP2013048979

PATIENT
  Age: 67 Year
  Sex: Male
  Weight: 94.33 kg

DRUGS (4)
  1. ENBREL [Suspect]
     Indication: PRODUCT USED FOR UNKNOWN INDICATION
     Dosage: 50 MG, QWK
     Route: 058
  2. WESTCORT [Concomitant]
     Dosage: 0.2 %, UNK
  3. SYNTHROID [Concomitant]
     Dosage: 25 MUG, UNK
  4. AVODART [Concomitant]
     Dosage: 0.5 MG, UNK

REACTIONS (1)
  - Injection site pain [Unknown]
